FAERS Safety Report 8240968-9 (Version None)
Quarter: 2012Q1

REPORT INFORMATION
  Report Type: 
  Country: None (occurrence: None)
  Receive Date: 20120328
  Receipt Date: 20120314
  Transmission Date: 20120608
  Serious: Yes (Hospitalization)
  Sender: FDA-Public Use
  Company Number: GB-MYLANLABS-2012S1006005

PATIENT
  Age: 48 Year
  Sex: Male

DRUGS (4)
  1. LISINOPRIL [Concomitant]
     Indication: HYPERTENSION
     Route: 065
  2. SPIRONOLACTONE [Suspect]
     Indication: HYPERTENSION
     Dosage: INCREASED TO 100MG DAILY IN 2009
     Route: 065
     Dates: start: 20060101
  3. LERCANIDIPINE [Concomitant]
     Indication: HYPERTENSION
     Route: 065
  4. CHLORTHALIDONE [Suspect]
     Indication: HYPERTENSION
     Dosage: TITRATED TO 50MG
     Route: 065
     Dates: start: 20090101

REACTIONS (3)
  - HYPOKALAEMIA [None]
  - WITHDRAWAL SYNDROME [None]
  - RHABDOMYOLYSIS [None]
